FAERS Safety Report 8450001-1 (Version None)
Quarter: 2012Q2

REPORT INFORMATION
  Report Type: 
  Country: None (occurrence: None)
  Receive Date: 20120620
  Receipt Date: 20120618
  Transmission Date: 20120825
  Serious: Yes (Death)
  Sender: FDA-Public Use
  Company Number: PHEH2012US012170

PATIENT
  Sex: Female

DRUGS (2)
  1. RECLAST [Suspect]
     Route: 042
     Dates: start: 20110512
  2. RECLAST [Suspect]
     Route: 042
     Dates: start: 20100511

REACTIONS (1)
  - DEATH [None]
